FAERS Safety Report 7980092-3 (Version None)
Quarter: 2011Q4

REPORT INFORMATION
  Report Type: 
  Country: None (occurrence: None)
  Receive Date: 20111214
  Receipt Date: 20111208
  Transmission Date: 20120403
  Serious: Yes (Other)
  Sender: FDA-Public Use
  Company Number: FR-MERCK-1112FRA00044

PATIENT
  Sex: Female

DRUGS (1)
  1. JANUMET [Suspect]
     Route: 048

REACTIONS (1)
  - RENAL FAILURE ACUTE [None]
